FAERS Safety Report 8822358 (Version 3)
Quarter: 2012Q4

REPORT INFORMATION
  Report Type: 
  Country: GB (occurrence: GB)
  Receive Date: 20121003
  Receipt Date: 20121123
  Transmission Date: 20130627
  Serious: Yes (Other)
  Sender: FDA-Public Use
  Company Number: PHFR2012GB005194

PATIENT
  Age: 30 Year
  Sex: Female

DRUGS (4)
  1. CLOZARIL [Suspect]
     Indication: SCHIZOPHRENIA
     Dosage: 500 mg daily
     Route: 048
     Dates: start: 20080128
  2. CITALOPRAM [Concomitant]
     Indication: DEPRESSION
     Dosage: 20 mg daily
     Route: 048
  3. LACTULOSE [Concomitant]
     Indication: CONSTIPATION
     Dosage: 20 ml daily
     Route: 048
  4. LORAZEPAM [Concomitant]
     Indication: AGITATION
     Dosage: 1 mg, PRN
     Route: 048

REACTIONS (3)
  - Lymphocyte count decreased [Recovered/Resolved]
  - Diabetes mellitus [Not Recovered/Not Resolved]
  - Gastrooesophageal reflux disease [Not Recovered/Not Resolved]
